FAERS Safety Report 23919242 (Version 1)
Quarter: 2024Q2

REPORT INFORMATION
  Report Type: Spontaneous
  Country: US (occurrence: US)
  Receive Date: 20240530
  Receipt Date: 20240530
  Transmission Date: 20240716
  Serious: Yes (Hospitalization)
  Sender: FDA-Public Use
  Company Number: US-JNJFOC-20240559597

PATIENT
  Age: 89 Year
  Sex: Male

DRUGS (4)
  1. ERLEADA [Suspect]
     Active Substance: APALUTAMIDE
     Indication: Product used for unknown indication
     Route: 048
     Dates: end: 202403
  2. RELUGOLIX [Suspect]
     Active Substance: RELUGOLIX
     Indication: Prostate cancer
     Dosage: QD
     Route: 048
  3. XTANDI [Concomitant]
     Active Substance: ENZALUTAMIDE
  4. LEVOTHYROXINE [Concomitant]
     Active Substance: LEVOTHYROXINE\LEVOTHYROXINE SODIUM
     Indication: Hypothyroidism

REACTIONS (4)
  - Functional gastrointestinal disorder [Unknown]
  - Rash [Unknown]
  - Fatigue [Unknown]
  - Product use issue [Unknown]
